FAERS Safety Report 23570022 (Version 1)
Quarter: 2024Q1

REPORT INFORMATION
  Report Type: Spontaneous
  Country: US (occurrence: None)
  Receive Date: 20240226
  Receipt Date: 20240226
  Transmission Date: 20240409
  Serious: Yes (Other)
  Sender: FDA-Public Use
  Company Number: None

PATIENT
  Age: 76 Year
  Sex: Male
  Weight: 59.42 kg

DRUGS (9)
  1. FAMOTIDINE [Suspect]
     Active Substance: FAMOTIDINE
  2. PANTOPRAZOLE [Suspect]
     Active Substance: PANTOPRAZOLE
  3. CARVEDILOL [Concomitant]
     Active Substance: CARVEDILOL
  4. ROSUVASTATIN [Concomitant]
     Active Substance: ROSUVASTATIN
  5. EZETIBIE [Concomitant]
  6. LISINOPRIL [Concomitant]
     Active Substance: LISINOPRIL
  7. WARFARIN [Concomitant]
     Active Substance: WARFARIN
  8. SPIRONOLACTONE [Concomitant]
     Active Substance: SPIRONOLACTONE
  9. INR METER [Concomitant]

REACTIONS (3)
  - Abdominal pain upper [None]
  - Chest pain [None]
  - Drug hypersensitivity [None]

NARRATIVE: CASE EVENT DATE: 20240215
